FAERS Safety Report 15851012 (Version 1)
Quarter: 2019Q1

REPORT INFORMATION
  Report Type: Report from Study
  Country: US (occurrence: US)
  Receive Date: 20190122
  Receipt Date: 20190122
  Transmission Date: 20190417
  Serious: No
  Sender: FDA-Public Use
  Company Number: PHEH2019US002729

PATIENT
  Sex: Female

DRUGS (1)
  1. GILENYA [Suspect]
     Active Substance: FINGOLIMOD HYDROCHLORIDE
     Indication: MULTIPLE SCLEROSIS
     Dosage: 0.5 MG, QD
     Route: 048
     Dates: start: 20180411, end: 201809

REACTIONS (6)
  - Skin papilloma [Unknown]
  - Flushing [Unknown]
  - White blood cell count decreased [Unknown]
  - Cough [Unknown]
  - Calcinosis [Unknown]
  - Respiratory tract congestion [Unknown]
